FAERS Safety Report 21407775 (Version 1)
Quarter: 2022Q4

REPORT INFORMATION
  Report Type: Spontaneous
  Country: US (occurrence: None)
  Receive Date: 20221004
  Receipt Date: 20221004
  Transmission Date: 20230113
  Serious: No
  Sender: FDA-Public Use
  Company Number: None

PATIENT
  Age: 64 Year
  Sex: Male
  Weight: 88.2 kg

DRUGS (9)
  1. LIVALO [Suspect]
     Active Substance: PITAVASTATIN CALCIUM
     Indication: Blood cholesterol increased
     Dosage: OTHER QUANTITY : 0.5 TABLET(S);?OTHER FREQUENCY : 3X/WEEK;?
     Route: 048
     Dates: start: 20220817, end: 20220826
  2. PANTOPRAZOLE [Concomitant]
     Active Substance: PANTOPRAZOLE
  3. LISINOPRIL [Concomitant]
     Active Substance: LISINOPRIL
  4. ASPIRIN [Concomitant]
     Active Substance: ASPIRIN
  5. PEPCID [Concomitant]
     Active Substance: FAMOTIDINE
  6. Theralogix Prostate 2.4 [Concomitant]
  7. Theralogix Companion [Concomitant]
  8. VITAMIN C [Concomitant]
     Active Substance: ASCORBIC ACID
  9. METAMUCIL [Concomitant]
     Active Substance: PLANTAGO SEED

REACTIONS (2)
  - Myalgia [None]
  - Sleep disorder [None]

NARRATIVE: CASE EVENT DATE: 20220827
